FAERS Safety Report 25818820 (Version 1)
Quarter: 2025Q3

REPORT INFORMATION
  Report Type: Spontaneous
  Country: CA (occurrence: None)
  Receive Date: 20250918
  Receipt Date: 20250918
  Transmission Date: 20251020
  Serious: Yes (unspecified)
  Sender: FDA-CTU
  Company Number: None

PATIENT
  Age: 36 Year
  Sex: Female
  Weight: 49.5 kg

DRUGS (1)
  1. UBRELVY [Suspect]
     Active Substance: UBROGEPANT
     Indication: Migraine
     Route: 048
     Dates: start: 20250910

REACTIONS (5)
  - Agitation [None]
  - Suicidal ideation [None]
  - Mood altered [None]
  - Self-injurious ideation [None]
  - Depressed mood [None]

NARRATIVE: CASE EVENT DATE: 20250911
